FAERS Safety Report 11683990 (Version 5)
Quarter: 2016Q3

REPORT INFORMATION
  Report Type: Spontaneous
  Country: IT (occurrence: IT)
  Receive Date: 20151029
  Receipt Date: 20160711
  Transmission Date: 20161109
  Serious: Yes (Death)
  Sender: FDA-Public Use
  Company Number: IT-B.I. PHARMACEUTICALS,INC./RIDGEFIELD-2010-IT-00077IT

PATIENT
  Age: 70 Year
  Sex: Male

DRUGS (3)
  1. MIRAPEXIN [Suspect]
     Active Substance: PRAMIPEXOLE
     Indication: PRODUCT USED FOR UNKNOWN INDICATION
     Route: 065
  2. LEVODOPA [Suspect]
     Active Substance: LEVODOPA
     Indication: PRODUCT USED FOR UNKNOWN INDICATION
     Route: 065
  3. COMTAN [Suspect]
     Active Substance: ENTACAPONE
     Indication: PRODUCT USED FOR UNKNOWN INDICATION
     Route: 065

REACTIONS (7)
  - Hypersexuality [Unknown]
  - Alcohol abuse [Unknown]
  - Compulsive shopping [Unknown]
  - Gambling disorder [Unknown]
  - Drug abuse [Unknown]
  - Compulsive hoarding [Unknown]
  - Death [Fatal]

NARRATIVE: CASE EVENT DATE: 20120923
